FAERS Safety Report 7041467-2 (Version None)
Quarter: 2010Q4

REPORT INFORMATION
  Report Type: 
  Country: None (occurrence: None)
  Receive Date: 20101013
  Receipt Date: 20090831
  Transmission Date: 20110411
  Serious: No
  Sender: FDA-Public Use
  Company Number: US-ASTRAZENECA-2009SE10898

PATIENT
  Age: 78 Year
  Sex: Female
  Weight: 77.1 kg

DRUGS (7)
  1. SYMBICORT [Suspect]
     Dosage: 320 MCG BID
     Route: 055
     Dates: start: 20090719
  2. OMEPRAZOLE [Concomitant]
  3. DILTIAZEM [Concomitant]
  4. LEVOTHYROXINE [Concomitant]
  5. XANAX [Concomitant]
  6. ALBUTEROL [Concomitant]
  7. ZYRTEC [Concomitant]

REACTIONS (2)
  - DYSPHONIA [None]
  - INCREASED UPPER AIRWAY SECRETION [None]
